FAERS Safety Report 10009677 (Version 2)
Quarter: 2014Q1

REPORT INFORMATION
  Report Type: Spontaneous
  Country: US (occurrence: US)
  Receive Date: 20140312
  Receipt Date: 20140312
  Transmission Date: 20141002
  Serious: Yes (Other)
  Sender: FDA-Public Use
  Company Number: US-INCYTE CORPORATION-2012IN001797

PATIENT
  Age: 80 Year
  Sex: Male
  Weight: 60.32 kg

DRUGS (13)
  1. JAKAFI [Suspect]
     Indication: MYELOFIBROSIS
     Dosage: 15 MG, BID
     Route: 048
     Dates: start: 20120416, end: 20120828
  2. CARBIDOPA W/LEVODOPA [Concomitant]
  3. AVIDART [Concomitant]
  4. PRILOSEC [Concomitant]
  5. LEVOXYL [Concomitant]
  6. KLONOPIN [Concomitant]
  7. REQUIP [Concomitant]
  8. SEROQUEL [Concomitant]
  9. CELEXA [Concomitant]
  10. OXYBUTYNIN CHLORIDE [Concomitant]
  11. CALCIUM + VITAMIN D [Concomitant]
     Indication: SUPPLEMENTATION THERAPY
  12. PERI-COLACE [Concomitant]
  13. MEGESTROL [Concomitant]
     Dosage: UNK

REACTIONS (8)
  - Thrombocytopenia [Unknown]
  - Platelet count increased [Unknown]
  - Drug ineffective [Unknown]
  - Pain [Unknown]
  - Fall [Unknown]
  - Neurological symptom [None]
  - Night sweats [Unknown]
  - Abdominal discomfort [Unknown]
